FAERS Safety Report 13765992 (Version 2)
Quarter: 2017Q3

REPORT INFORMATION
  Report Type: Spontaneous
  Country: CH (occurrence: CH)
  Receive Date: 20170718
  Receipt Date: 20170725
  Transmission Date: 20171127
  Serious: Yes (Death)
  Sender: FDA-Public Use
  Company Number: CH-009507513-1707CHE005780

PATIENT
  Age: 65 Year
  Sex: Female
  Weight: 105 kg

DRUGS (13)
  1. CEFEPIME [Suspect]
     Active Substance: CEFEPIME HYDROCHLORIDE
     Dosage: 1 G, QD
     Route: 041
     Dates: start: 20170609, end: 20170613
  2. FENTANYL. [Concomitant]
     Active Substance: FENTANYL
     Dosage: UNK
     Dates: start: 20170619, end: 20170623
  3. DISOPRIVAN [Concomitant]
     Active Substance: PROPOFOL
     Dosage: UNK
     Dates: start: 20170619, end: 20170623
  4. MARCOUMAR [Concomitant]
     Active Substance: PHENPROCOUMON
     Dosage: 1 DF, UNK
     Dates: start: 201502
  5. STILNOX [Concomitant]
     Active Substance: ZOLPIDEM TARTRATE
     Dosage: 5 MG, UNK
     Dates: start: 20170608, end: 20170617
  6. MIDAZOLAM [Concomitant]
     Active Substance: MIDAZOLAM HYDROCHLORIDE
     Dosage: UNK
     Dates: start: 20170619, end: 20170623
  7. VITAMIN D3 WILD [Concomitant]
     Active Substance: CHOLECALCIFEROL
     Dosage: 20 GTT, QD
  8. VALPROAT [Concomitant]
     Active Substance: VALPROATE SODIUM
     Dosage: UNK
     Dates: start: 20170623, end: 20170623
  9. RESONIUM [Concomitant]
     Active Substance: SODIUM POLYSTYRENE SULFONATE
     Dosage: 1 DF, UNK
     Dates: start: 20170610
  10. INVANZ [Suspect]
     Active Substance: ERTAPENEM SODIUM
     Dosage: 0.5 G, QD
     Route: 041
     Dates: start: 20170613, end: 20170622
  11. CUBICIN [Suspect]
     Active Substance: DAPTOMYCIN
     Dosage: 700 MG, QOD
     Route: 041
     Dates: start: 20170613, end: 20170621
  12. KEPPRA [Concomitant]
     Active Substance: LEVETIRACETAM
     Dosage: UNK
     Dates: start: 20170619, end: 20170623
  13. RIVOTRIL [Concomitant]
     Active Substance: CLONAZEPAM
     Dosage: UNK
     Dates: start: 20170619, end: 20170623

REACTIONS (2)
  - Respiratory failure [Fatal]
  - Status epilepticus [Fatal]

NARRATIVE: CASE EVENT DATE: 20170619
